FAERS Safety Report 21803067 (Version 1)
Quarter: 2022Q4

REPORT INFORMATION
  Report Type: Report from Study
  Country: US (occurrence: US)
  Receive Date: 20221231
  Receipt Date: 20221231
  Transmission Date: 20230113
  Serious: No
  Sender: FDA-Public Use
  Company Number: US-ACORDA-ACO_173903_2022

PATIENT
  Age: 60 Year
  Sex: Male

DRUGS (7)
  1. INBRIJA [Suspect]
     Active Substance: LEVODOPA
     Indication: Parkinson^s disease
     Dosage: 84 MILLIGRAM, PRN, NOT TO EXCEED 5 DOSES A DAY
     Dates: start: 20221027
  2. INBRIJA [Suspect]
     Active Substance: LEVODOPA
     Indication: On and off phenomenon
     Dosage: 84 MILLIGRAM, PRN, NOT TO EXCEED 5 DOSES A DAY
     Dates: start: 20221027
  3. INBRIJA [Suspect]
     Active Substance: LEVODOPA
     Dosage: 84 MILLIGRAM, PRN, NOT TO EXCEED 5 DOSES A DAY
     Dates: start: 20221027
  4. HERBALS [Concomitant]
     Active Substance: HERBALS
     Indication: Product used for unknown indication
     Dosage: UNK, TID
     Route: 065
  5. TYROSINE [Concomitant]
     Active Substance: TYROSINE
     Indication: Product used for unknown indication
     Dosage: UNK, TID
     Route: 065
  6. OTHER THERAPEUTIC PRODUCTS (Neuro replete) [Concomitant]
     Indication: Product used for unknown indication
     Dosage: UNK, TID
     Route: 065
  7. OTHER THERAPEUTIC PRODUCTS (Cysreplete) [Concomitant]
     Indication: Product used for unknown indication
     Dosage: UNK, TID
     Route: 065

REACTIONS (6)
  - Unevaluable event [Unknown]
  - Product packaging difficult to open [Unknown]
  - Product communication issue [Unknown]
  - Therapeutic product effect variable [Unknown]
  - Therapeutic product effect decreased [Unknown]
  - Inappropriate schedule of product administration [Unknown]

NARRATIVE: CASE EVENT DATE: 20221027
